FAERS Safety Report 4617663-8 (Version None)
Quarter: 2005Q1

REPORT INFORMATION
  Report Type: 
  Country: None (occurrence: None)
  Receive Date: 20050322
  Receipt Date: 20050308
  Transmission Date: 20050727
  Serious: No
  Sender: FDA-Public Use
  Company Number: 2005AP01681

PATIENT
  Age: 59 Year
  Sex: Female

DRUGS (3)
  1. ZESTRIL [Suspect]
     Dosage: 20 MG DAILY PO
     Route: 048
  2. DIAFORMIN [Suspect]
     Dosage: 3 G DAILY PO
     Route: 048
  3. NATRILIX [Suspect]
     Dosage: 2 MG DAILY PO
     Route: 048

REACTIONS (3)
  - CIRCULATORY COLLAPSE [None]
  - ORTHOSTATIC HYPOTENSION [None]
  - WEIGHT DECREASED [None]
